FAERS Safety Report 18879526 (Version 1)
Quarter: 2021Q1

REPORT INFORMATION
  Report Type: Spontaneous
  Country: US (occurrence: US)
  Receive Date: 20210211
  Receipt Date: 20210211
  Transmission Date: 20210420
  Serious: No
  Sender: FDA-Public Use
  Company Number: US-STRIDES ARCOLAB LIMITED-2020SP014592

PATIENT
  Age: 34 Year
  Sex: Female

DRUGS (12)
  1. KETAMINE [Suspect]
     Active Substance: KETAMINE
     Dosage: 10 MG/HR WITH TWO 5MG BOLUSES
     Route: 065
  2. OXYCODONE [Suspect]
     Active Substance: OXYCODONE
     Indication: ANALGESIC THERAPY
     Dosage: 5 MILLIGRAM, EVERY 4 HRS (Q4H)
     Route: 065
  3. KETAMINE [Suspect]
     Active Substance: KETAMINE
     Dosage: REDUCED DOSE BOLUS OF 5 MG (UPTO TWO TIMES)
     Route: 065
  4. OXYCODONE [Suspect]
     Active Substance: OXYCODONE
     Dosage: 10 MILLIGRAM, EVERY 4 HRS (Q4H)
     Route: 065
  5. PARACETAMOL [Suspect]
     Active Substance: ACETAMINOPHEN
     Indication: ANALGESIC THERAPY
     Dosage: 650 MILLIGRAM, EVERY 6 HRS (Q6H)
     Route: 065
  6. GABAPENTIN. [Suspect]
     Active Substance: GABAPENTIN
     Indication: ANALGESIC THERAPY
     Dosage: 600 MILLIGRAM, EVERY 8 HOURS (Q8H)
     Route: 065
  7. BACITRACIN. [Suspect]
     Active Substance: BACITRACIN
     Indication: BURN DRESSING
     Dosage: UNK
     Route: 065
  8. FENTANYL. [Suspect]
     Active Substance: FENTANYL
     Indication: ANALGESIC THERAPY
     Dosage: UNK
     Route: 065
  9. LORAZEPAM. [Suspect]
     Active Substance: LORAZEPAM
     Indication: ANALGESIC THERAPY
     Dosage: UNK
     Route: 042
  10. KETAMINE [Suspect]
     Active Substance: KETAMINE
     Indication: ANALGESIC THERAPY
     Dosage: 5 MG/HR (0.06 MG/KG/HR) WITH A REDUCED DOSE BOLUS OF 5MG (UP TO TWO TIMES)
     Route: 065
  11. PARACETAMOL [Suspect]
     Active Substance: ACETAMINOPHEN
     Dosage: UNK
     Route: 048
  12. SILVER SULFADIAZINE. [Suspect]
     Active Substance: SILVER SULFADIAZINE
     Indication: BURN DRESSING
     Dosage: UNK
     Route: 065

REACTIONS (1)
  - Maternal exposure during pregnancy [Unknown]
